FAERS Safety Report 9457871 (Version 1)
Quarter: 2013Q3

REPORT INFORMATION
  Report Type: Spontaneous
  Country: BR (occurrence: BR)
  Receive Date: 20130814
  Receipt Date: 20130814
  Transmission Date: 20140515
  Serious: Yes (Other)
  Sender: FDA-Public Use
  Company Number: BR-009507513-1308BRA003112

PATIENT
  Age: 54 Year
  Sex: Female
  Weight: 63 kg

DRUGS (3)
  1. VYTORIN [Suspect]
     Dosage: UNK
     Route: 048
  2. GADOVIST [Concomitant]
     Indication: NUCLEAR MAGNETIC RESONANCE IMAGING
     Dosage: 7.5 ML, ONCE
     Route: 042
     Dates: start: 20130511, end: 20130511
  3. ANGELIQ [Concomitant]

REACTIONS (7)
  - Hypertensive crisis [Recovered/Resolved]
  - Tendonitis [Unknown]
  - Tachycardia [Recovered/Resolved]
  - Hyperaemia [Recovered/Resolved]
  - Feeling hot [Recovered/Resolved]
  - Urticaria [Recovered/Resolved]
  - Malaise [Recovered/Resolved]
